FAERS Safety Report 25024590 (Version 1)
Quarter: 2025Q1

REPORT INFORMATION
  Report Type: Spontaneous
  Country: PT (occurrence: PT)
  Receive Date: 20250228
  Receipt Date: 20250228
  Transmission Date: 20250408
  Serious: Yes (Other)
  Sender: PFIZER
  Company Number: None

PATIENT
  Age: 67 Year
  Sex: Female
  Weight: 70 kg

DRUGS (2)
  1. RITUXIMAB [Suspect]
     Active Substance: RITUXIMAB
     Indication: Non-Hodgkin^s lymphoma
     Dosage: 657 MG, EVERY 3 WEEKS (INFUSED ONLY FOR 1H30MIN)
     Route: 042
     Dates: start: 20250212, end: 20250212
  2. MESNA [Suspect]
     Active Substance: MESNA
     Route: 042

REACTIONS (3)
  - Hypertension [Recovered/Resolved]
  - Tremor [Recovered/Resolved]
  - Wheezing [Recovered/Resolved]

NARRATIVE: CASE EVENT DATE: 20250212
